FAERS Safety Report 13025345 (Version 1)
Quarter: 2016Q4

REPORT INFORMATION
  Report Type: Spontaneous
  Country: US (occurrence: US)
  Receive Date: 20161214
  Receipt Date: 20161214
  Transmission Date: 20170207
  Serious: No
  Sender: FDA-Public Use
  Company Number: US-TEVA-678929USA

PATIENT
  Age: 62 Year
  Sex: Female

DRUGS (2)
  1. DULOXETINE. [Suspect]
     Active Substance: DULOXETINE
     Indication: DEPRESSION
  2. DULOXETINE. [Suspect]
     Active Substance: DULOXETINE
     Indication: ANXIETY
     Dates: start: 201201

REACTIONS (3)
  - Headache [Unknown]
  - Dizziness [Unknown]
  - Drug ineffective [Unknown]

NARRATIVE: CASE EVENT DATE: 20160711
